FAERS Safety Report 13660137 (Version 1)
Quarter: 2017Q2

REPORT INFORMATION
  Report Type: Spontaneous
  Country: KR (occurrence: KR)
  Receive Date: 20170616
  Receipt Date: 20170616
  Transmission Date: 20170830
  Serious: Yes (Other)
  Sender: FDA-Public Use
  Company Number: KR-009507513-1605KOR012586

PATIENT
  Age: 26 Year
  Sex: Male
  Weight: 56.2 kg

DRUGS (40)
  1. EMEND (FOSAPREPITANT DIMEGLUMINE) [Suspect]
     Active Substance: FOSAPREPITANT DIMEGLUMINE
     Dosage: 150 MG, ONCE
     Route: 042
     Dates: start: 20160720, end: 20160720
  2. MABTHERA [Concomitant]
     Active Substance: RITUXIMAB
     Indication: DIFFUSE LARGE B-CELL LYMPHOMA
     Dosage: 596 MG, ONCE, CYCLE 1
     Route: 042
     Dates: start: 20160518, end: 20160518
  3. ALOXI [Concomitant]
     Active Substance: PALONOSETRON HYDROCHLORIDE
     Dosage: 0.25 MG, ONCE
     Route: 042
     Dates: start: 20160608, end: 20160608
  4. EMEND (FOSAPREPITANT DIMEGLUMINE) [Suspect]
     Active Substance: FOSAPREPITANT DIMEGLUMINE
     Dosage: 150 MG, ONCE
     Route: 042
     Dates: start: 20160608, end: 20160608
  5. DBL VINCRISTINE SULFATE [Concomitant]
     Active Substance: VINCRISTINE SULFATE
     Dosage: 2 MG, ONCE, CYCLE 2
     Route: 042
     Dates: start: 20160608, end: 20160608
  6. DBL VINCRISTINE SULFATE [Concomitant]
     Active Substance: VINCRISTINE SULFATE
     Dosage: 2 MG, ONCE, CYCLE 3
     Route: 042
     Dates: start: 20160629, end: 20160629
  7. DOXORUBICIN HYDROCHLORIDE. [Concomitant]
     Active Substance: DOXORUBICIN HYDROCHLORIDE
     Dosage: 80 MG, ONCE, CYCLE 6
     Route: 042
     Dates: start: 20160831, end: 20160831
  8. CRESTOR [Concomitant]
     Active Substance: ROSUVASTATIN CALCIUM
     Indication: DYSLIPIDAEMIA
     Dosage: 10 MG, QD
     Route: 048
     Dates: start: 20160512
  9. EMEND (FOSAPREPITANT DIMEGLUMINE) [Suspect]
     Active Substance: FOSAPREPITANT DIMEGLUMINE
     Dosage: 150 MG, ONCE
     Route: 042
     Dates: start: 20160810, end: 20160810
  10. EMEND (FOSAPREPITANT DIMEGLUMINE) [Suspect]
     Active Substance: FOSAPREPITANT DIMEGLUMINE
     Dosage: 150 MG, ONCE
     Route: 042
     Dates: start: 20160831, end: 20160831
  11. MABTHERA [Concomitant]
     Active Substance: RITUXIMAB
     Dosage: 600 MG, ONCE, CYCLE 3
     Route: 042
     Dates: start: 20160629, end: 20160629
  12. MABTHERA [Concomitant]
     Active Substance: RITUXIMAB
     Dosage: 600 MG, ONCE, CYCLE 5
     Route: 042
     Dates: start: 20160810, end: 20160810
  13. ENDOXAN [Concomitant]
     Active Substance: CYCLOPHOSPHAMIDE
     Dosage: 1200 MG, ONCE, CYCLE 6
     Route: 042
     Dates: start: 20160831, end: 20160831
  14. ALOXI [Concomitant]
     Active Substance: PALONOSETRON HYDROCHLORIDE
     Indication: PROPHYLAXIS OF NAUSEA AND VOMITING
     Dosage: 0.25 MG, ONCE
     Route: 042
     Dates: start: 20160518, end: 20160518
  15. APIDRA [Concomitant]
     Active Substance: INSULIN GLULISINE
     Indication: DIABETES MELLITUS
     Dosage: 14 UNITS, QD
     Route: 058
     Dates: start: 20160511
  16. ENDOXAN [Concomitant]
     Active Substance: CYCLOPHOSPHAMIDE
     Dosage: 1200 MG, ONCE, CYCLE 2
     Route: 042
     Dates: start: 20160608, end: 20160608
  17. ALOXI [Concomitant]
     Active Substance: PALONOSETRON HYDROCHLORIDE
     Dosage: 0.25 MG, ONCE
     Route: 042
     Dates: start: 20160810, end: 20160810
  18. LANTUS [Concomitant]
     Active Substance: INSULIN GLARGINE
     Indication: DIABETES MELLITUS
     Dosage: 20 UNITS, QD
     Route: 058
     Dates: start: 20160512
  19. EMEND (FOSAPREPITANT DIMEGLUMINE) [Suspect]
     Active Substance: FOSAPREPITANT DIMEGLUMINE
     Indication: PROPHYLAXIS OF NAUSEA AND VOMITING
     Dosage: 150 MG, ONCE
     Route: 042
     Dates: start: 20160518, end: 20160518
  20. DBL VINCRISTINE SULFATE [Concomitant]
     Active Substance: VINCRISTINE SULFATE
     Indication: DIFFUSE LARGE B-CELL LYMPHOMA
     Dosage: STRENGTH 1 MG/ 1ML; 2 MG, ONCE, CYCLE 1
     Route: 042
     Dates: start: 20160518, end: 20160518
  21. DBL VINCRISTINE SULFATE [Concomitant]
     Active Substance: VINCRISTINE SULFATE
     Dosage: 2 MG, ONCE, CYCLE 4
     Route: 042
     Dates: start: 20160720, end: 20160720
  22. DOXORUBICIN HYDROCHLORIDE. [Concomitant]
     Active Substance: DOXORUBICIN HYDROCHLORIDE
     Indication: DIFFUSE LARGE B-CELL LYMPHOMA
     Dosage: 79 MG, ONCE, CYCLE 1
     Route: 042
     Dates: start: 20160518, end: 20160518
  23. DOXORUBICIN HYDROCHLORIDE. [Concomitant]
     Active Substance: DOXORUBICIN HYDROCHLORIDE
     Dosage: 80 MG, ONCE, CYCLE 2
     Route: 042
     Dates: start: 20160608, end: 20160608
  24. DOXORUBICIN HYDROCHLORIDE. [Concomitant]
     Active Substance: DOXORUBICIN HYDROCHLORIDE
     Dosage: 80 MG, ONCE, CYCLE 4
     Route: 042
     Dates: start: 20160720, end: 20160720
  25. DOXORUBICIN HYDROCHLORIDE. [Concomitant]
     Active Substance: DOXORUBICIN HYDROCHLORIDE
     Dosage: 80 MG, ONCE, CYCLE 5
     Route: 042
     Dates: start: 20160810, end: 20160810
  26. ALOXI [Concomitant]
     Active Substance: PALONOSETRON HYDROCHLORIDE
     Dosage: 0.25 MG, ONCE
     Route: 042
     Dates: start: 20160629, end: 20160629
  27. ALOXI [Concomitant]
     Active Substance: PALONOSETRON HYDROCHLORIDE
     Dosage: 0.25 MG, ONCE
     Route: 042
     Dates: start: 20160720, end: 20160720
  28. ALOXI [Concomitant]
     Active Substance: PALONOSETRON HYDROCHLORIDE
     Dosage: 0.25 MG, ONCE
     Route: 042
     Dates: start: 20160831, end: 20160831
  29. ENDOXAN [Concomitant]
     Active Substance: CYCLOPHOSPHAMIDE
     Indication: DIFFUSE LARGE B-CELL LYMPHOMA
     Dosage: 1192 MG, ONCE, CYCLE 1
     Route: 042
     Dates: start: 20160518, end: 20160518
  30. EMEND (FOSAPREPITANT DIMEGLUMINE) [Suspect]
     Active Substance: FOSAPREPITANT DIMEGLUMINE
     Dosage: 150 MG, ONCE
     Route: 042
     Dates: start: 20160629, end: 20160629
  31. MABTHERA [Concomitant]
     Active Substance: RITUXIMAB
     Dosage: 600 MG, ONCE, CYCLE 4
     Route: 042
     Dates: start: 20160720, end: 20160720
  32. ENDOXAN [Concomitant]
     Active Substance: CYCLOPHOSPHAMIDE
     Dosage: 1200 MG, ONCE, CYCLE 3
     Route: 042
     Dates: start: 20160629, end: 20160629
  33. ENDOXAN [Concomitant]
     Active Substance: CYCLOPHOSPHAMIDE
     Dosage: 1200 MG, ONCE, CYCLE 4
     Route: 042
     Dates: start: 20160720, end: 20160720
  34. DBL VINCRISTINE SULFATE [Concomitant]
     Active Substance: VINCRISTINE SULFATE
     Dosage: 2 MG, ONCE, CYCLE 6
     Route: 042
     Dates: start: 20160831, end: 20160831
  35. DOXORUBICIN HYDROCHLORIDE. [Concomitant]
     Active Substance: DOXORUBICIN HYDROCHLORIDE
     Dosage: 80 MG, ONCE, CYCLE 3
     Route: 042
     Dates: start: 20160629, end: 20160629
  36. MABTHERA [Concomitant]
     Active Substance: RITUXIMAB
     Dosage: 600 MG, ONCE, CYCLE 2
     Route: 042
     Dates: start: 20160608, end: 20160608
  37. MABTHERA [Concomitant]
     Active Substance: RITUXIMAB
     Dosage: 600 MG, ONCE, CYCLE 6
     Route: 042
     Dates: start: 20160831, end: 20160831
  38. ENDOXAN [Concomitant]
     Active Substance: CYCLOPHOSPHAMIDE
     Dosage: 1200 MG, ONCE, CYCLE 5
     Route: 042
     Dates: start: 20160810, end: 20160810
  39. DBL VINCRISTINE SULFATE [Concomitant]
     Active Substance: VINCRISTINE SULFATE
     Dosage: 2 MG, ONCE, CYCLE 5
     Route: 042
     Dates: start: 20160810, end: 20160810
  40. LOSARTAN POTASSIUM. [Concomitant]
     Active Substance: LOSARTAN POTASSIUM
     Indication: HYPERTENSION
     Dosage: 25 MG, QD
     Route: 048
     Dates: start: 20160512

REACTIONS (5)
  - Neuropathy peripheral [Recovering/Resolving]
  - Dizziness [Recovered/Resolved]
  - Somatic symptom disorder [Recovering/Resolving]
  - Dyspepsia [Recovered/Resolved]
  - Infusion related reaction [Recovered/Resolved]

NARRATIVE: CASE EVENT DATE: 20160518
